FAERS Safety Report 6635549-4 (Version None)
Quarter: 2010Q1

REPORT INFORMATION
  Report Type: 
  Country: None (occurrence: None)
  Receive Date: 20100315
  Receipt Date: 20091214
  Transmission Date: 20100710
  Serious: No
  Sender: FDA-Public Use
  Company Number: US-ABBOTT-09P-163-0615248-00

PATIENT
  Sex: Female

DRUGS (3)
  1. DEPAKOTE [Suspect]
     Indication: DRUG USE FOR UNKNOWN INDICATION
  2. AMBIEN [Suspect]
     Indication: SLEEP DISORDER
     Dates: start: 20050101
  3. AMBIEN [Suspect]
     Dates: start: 20091011, end: 20091011

REACTIONS (1)
  - VISUAL IMPAIRMENT [None]
